FAERS Safety Report 5230178-1 (Version None)
Quarter: 2007Q1

REPORT INFORMATION
  Report Type: 
  Country: None (occurrence: None)
  Receive Date: 20070206
  Receipt Date: 20060921
  Transmission Date: 20070707
  Serious: No
  Sender: FDA-Public Use
  Company Number: US-GLAXOSMITHKLINE-A0620974A

PATIENT
  Sex: Female

DRUGS (5)
  1. PAXIL CR [Suspect]
     Dosage: 37.5MG PER DAY
     Route: 048
  2. ALLEGRA [Concomitant]
  3. LOPERAMIDE HCL [Concomitant]
  4. TIAZAC [Concomitant]
  5. ACETAMINOPHEN W/ CODEINE TAB [Concomitant]

REACTIONS (2)
  - ASTHENIA [None]
  - MEMORY IMPAIRMENT [None]
